FAERS Safety Report 20631393 (Version 1)
Quarter: 2022Q1

REPORT INFORMATION
  Report Type: Spontaneous
  Country: US (occurrence: US)
  Receive Date: 20220324
  Receipt Date: 20220324
  Transmission Date: 20220423
  Serious: No
  Sender: FDA-Public Use
  Company Number: US-IMPEL NEUROPHARMA-2022-SPO-TR-0013

PATIENT

DRUGS (2)
  1. TRUDHESA [Suspect]
     Active Substance: DIHYDROERGOTAMINE MESYLATE
     Indication: Migraine
     Dosage: 1.45 MILLIGRAM, SINGLE
     Route: 045
     Dates: start: 2022
  2. ATOGEPANT [Concomitant]
     Active Substance: ATOGEPANT
     Indication: Product used for unknown indication
     Dosage: UNK, QD

REACTIONS (1)
  - Product administration error [Unknown]

NARRATIVE: CASE EVENT DATE: 20220218
